FAERS Safety Report 16198065 (Version 1)
Quarter: 2019Q2

REPORT INFORMATION
  Report Type: Spontaneous
  Country: US (occurrence: US)
  Receive Date: 20190312
  Receipt Date: 20190312
  Transmission Date: 20190711
  Serious: Yes (Hospitalization)
  Sender: FDA-Public Use
  Company Number: None

PATIENT
  Age: 47 Year
  Sex: Female

DRUGS (11)
  1. NAPROXEN. [Concomitant]
     Active Substance: NAPROXEN
  2. HYD.ROCO/APAP [Concomitant]
  3. DEXMETH [Concomitant]
  4. VITAMIN D NOS [Concomitant]
     Active Substance: VITAMIN D NOS
  5. FEROCOM [Concomitant]
  6. BUPROPN [Concomitant]
  7. HUMIRA [Suspect]
     Active Substance: ADALIMUMAB
     Indication: RHEUMATOID ARTHRITIS
     Dosage: ?          OTHER FREQUENCY:EVERY 14 DAYS;?
     Route: 058
  8. OFLOXACIN. [Concomitant]
     Active Substance: OFLOXACIN
  9. METHOTREXATE. [Concomitant]
     Active Substance: METHOTREXATE
  10. MAXIDEX [Concomitant]
     Active Substance: DEXAMETHASONE
  11. FOLIC ACID. [Concomitant]
     Active Substance: FOLIC ACID

REACTIONS (6)
  - Pain [None]
  - Foreign body in eye [None]
  - Depression [None]
  - Arthritis [None]
  - Fungal skin infection [None]
  - Corneal transplant [None]

NARRATIVE: CASE EVENT DATE: 20181207
